FAERS Safety Report 9453133 (Version 3)
Quarter: 2013Q3

REPORT INFORMATION
  Report Type: Spontaneous
  Country: US (occurrence: US)
  Receive Date: 20130812
  Receipt Date: 20130917
  Transmission Date: 20140515
  Serious: Yes (Hospitalization)
  Sender: FDA-Public Use
  Company Number: PHEH2013US016705

PATIENT
  Age: 58 Year
  Sex: Female
  Weight: 85.71 kg

DRUGS (6)
  1. GILENYA [Suspect]
     Indication: MULTIPLE SCLEROSIS
     Dosage: 0.5 MG, QD
     Route: 048
     Dates: start: 201204
  2. DEPAKOTE [Concomitant]
     Indication: EPILEPSY
     Dosage: 500 MG, TID
     Route: 048
  3. KEPPRA [Concomitant]
     Indication: EPILEPSY
     Dosage: 250 MG, TID
     Route: 048
  4. SYNTHROID [Concomitant]
     Dosage: 100 UG, UNK
     Dates: start: 2012
  5. ASA [Concomitant]
     Dosage: 325 MG, UNK
     Dates: start: 2010
  6. VIT D3 [Concomitant]
     Dosage: 1000 UG, UNK
     Route: 048
     Dates: start: 2013

REACTIONS (10)
  - Complicated migraine [Recovered/Resolved]
  - Dysarthria [Unknown]
  - Confusional state [Unknown]
  - White blood cell count increased [Unknown]
  - Cerebrovascular accident [Recovered/Resolved]
  - Chest pain [Recovered/Resolved]
  - Aphasia [Recovering/Resolving]
  - Cognitive disorder [Recovered/Resolved]
  - Disorientation [Unknown]
  - Fatigue [Unknown]
